FAERS Safety Report 6793013-6 (Version None)
Quarter: 2010Q2

REPORT INFORMATION
  Report Type: 
  Country: None (occurrence: None)
  Receive Date: 20100624
  Receipt Date: 20081202
  Transmission Date: 20101027
  Serious: Yes (Other)
  Sender: FDA-Public Use
  Company Number: US-PFIZER INC-2008151559

PATIENT
  Sex: Female
  Weight: 47.619 kg

DRUGS (4)
  1. CADUET [Suspect]
     Indication: BLOOD PRESSURE
     Dosage: 5/10 MG DAILY
     Dates: start: 20081001, end: 20081128
  2. CADUET [Suspect]
     Indication: BLOOD CHOLESTEROL
  3. LANOXIN [Concomitant]
     Dosage: UNK
  4. FEOSOL [Concomitant]
     Dosage: UNK

REACTIONS (2)
  - DIZZINESS [None]
  - HYPERTENSION [None]
